FAERS Safety Report 13363801 (Version 1)
Quarter: 2017Q1

REPORT INFORMATION
  Report Type: Spontaneous
  Country: US (occurrence: US)
  Receive Date: 20170323
  Receipt Date: 20170323
  Transmission Date: 20170429
  Serious: Yes (Hospitalization, Other)
  Sender: FDA-Public Use
  Company Number: US-DSJP-DSU-2017-106010

PATIENT

DRUGS (2)
  1. BENICAR [Suspect]
     Active Substance: OLMESARTAN MEDOXOMIL
     Indication: HYPERTENSION
     Dosage: 20 MG, QD
     Route: 048
     Dates: start: 20060117, end: 20130725
  2. BENICAR HCT [Suspect]
     Active Substance: HYDROCHLOROTHIAZIDE\OLMESARTAN MEDOXOMIL
     Indication: PRODUCT USED FOR UNKNOWN INDICATION
     Dosage: 20/12.5 MG, UNK
     Dates: start: 2012, end: 2014

REACTIONS (6)
  - Malabsorption [Not Recovered/Not Resolved]
  - Gastric ulcer [Unknown]
  - Acute kidney injury [Unknown]
  - Barrett^s oesophagus [Not Recovered/Not Resolved]
  - Gastrooesophageal reflux disease [Not Recovered/Not Resolved]
  - Cholecystectomy [Recovered/Resolved]

NARRATIVE: CASE EVENT DATE: 2008
